FAERS Safety Report 18135384 (Version 1)
Quarter: 2020Q3

REPORT INFORMATION
  Report Type: Spontaneous
  Country: US (occurrence: US)
  Receive Date: 20200811
  Receipt Date: 20200811
  Transmission Date: 20201103
  Serious: No
  Sender: FDA-Public Use
  Company Number: None

PATIENT
  Age: 69 Year
  Sex: Female
  Weight: 62.6 kg

DRUGS (17)
  1. MARINOL [Concomitant]
     Active Substance: DRONABINOL
  2. OLANZAPINE. [Concomitant]
     Active Substance: OLANZAPINE
  3. ONDANSETRON [Concomitant]
     Active Substance: ONDANSETRON
  4. VARUBI [Concomitant]
     Active Substance: ROLAPITANT
  5. ZYPREXA [Concomitant]
     Active Substance: OLANZAPINE
  6. FARYDAK [Suspect]
     Active Substance: PANOBINOSTAT
     Indication: PLASMA CELL MYELOMA
     Dosage: ?          OTHER FREQUENCY:MON, WED, FRI;?
     Route: 048
     Dates: start: 20200805, end: 20200811
  7. GABAPENTIN. [Concomitant]
     Active Substance: GABAPENTIN
  8. VELCADE [Concomitant]
     Active Substance: BORTEZOMIB
  9. MELOXICAM. [Concomitant]
     Active Substance: MELOXICAM
  10. METRONIDAZOLE. [Concomitant]
     Active Substance: METRONIDAZOLE
  11. VITAMIN D3 [Concomitant]
     Active Substance: CHOLECALCIFEROL
  12. MIRALAX [Concomitant]
     Active Substance: POLYETHYLENE GLYCOL 3350
  13. OXYCODONE HYDROCHLORIDE. [Concomitant]
     Active Substance: OXYCODONE HYDROCHLORIDE
  14. ACYCLOVIR. [Concomitant]
     Active Substance: ACYCLOVIR
  15. XPOVIO [Concomitant]
     Active Substance: SELINEXOR
  16. ATOVAQUONE. [Concomitant]
     Active Substance: ATOVAQUONE
  17. FENTANYL. [Concomitant]
     Active Substance: FENTANYL

REACTIONS (1)
  - Dehydration [None]

NARRATIVE: CASE EVENT DATE: 20200811
